FAERS Safety Report 4911126-8 (Version None)
Quarter: 2006Q1

REPORT INFORMATION
  Report Type: 
  Country: None (occurrence: None)
  Receive Date: 20060209
  Receipt Date: 20060127
  Transmission Date: 20060701
  Serious: Yes (Hospitalization)
  Sender: FDA-Public Use
  Company Number: 2005164829

PATIENT
  Sex: Female

DRUGS (8)
  1. NEURONTIN [Suspect]
     Indication: EPILEPSY
  2. DILANTIN [Suspect]
     Indication: EPILEPSY
  3. VALIUM [Concomitant]
  4. MS CONTIN [Concomitant]
  5. LUVOX [Concomitant]
  6. CALTRATE (CALCIUM CARBONATE) [Concomitant]
  7. B COMPLEX (NICOTINAMIDE, PYRIDOXINE HYDROCHLORIDE, RIBOFLAVIN, THIAMIN [Concomitant]
  8. ALL OTHER THERAPEUTIC PRODUCTS (ALL OTHER THERAPEUTIC PRODUCTS) [Concomitant]

REACTIONS (3)
  - GASTROINTESTINAL DISORDER [None]
  - GASTROINTESTINAL STOMA COMPLICATION [None]
  - THROMBOSIS [None]
